FAERS Safety Report 18894484 (Version 1)
Quarter: 2021Q1

REPORT INFORMATION
  Report Type: Spontaneous
  Country: US (occurrence: US)
  Receive Date: 20210215
  Receipt Date: 20210215
  Transmission Date: 20210420
  Serious: Yes (Death, Hospitalization, Other)
  Sender: FDA-Public Use
  Company Number: US-MAYNE PHARMA-2021MYN000057

PATIENT

DRUGS (1)
  1. CLOZAPINE. [Suspect]
     Active Substance: CLOZAPINE
     Indication: PRODUCT USED FOR UNKNOWN INDICATION
     Dosage: UNK
     Route: 065

REACTIONS (7)
  - Catatonia [Unknown]
  - Sepsis [Fatal]
  - Aspiration [Unknown]
  - Brain injury [Fatal]
  - Pneumonia aspiration [Fatal]
  - Myocardial infarction [Fatal]
  - Status epilepticus [Fatal]

NARRATIVE: CASE EVENT DATE: 20201109
